FAERS Safety Report 11923429 (Version 10)
Quarter: 2017Q4

REPORT INFORMATION
  Report Type: Report from Study
  Country: DE (occurrence: DE)
  Receive Date: 20160118
  Receipt Date: 20171216
  Transmission Date: 20180320
  Serious: Yes (Death, Other)
  Sender: FDA-Public Use
  Company Number: DE-ROCHE-1658505

PATIENT
  Age: 87 Year
  Sex: Male
  Weight: 60 kg

DRUGS (1)
  1. VISMODEGIB. [Suspect]
     Active Substance: VISMODEGIB
     Indication: BASAL CELL CARCINOMA
     Route: 048
     Dates: start: 20140819, end: 201512

REACTIONS (6)
  - Squamous cell carcinoma [Recovered/Resolved]
  - Alopecia [Not Recovered/Not Resolved]
  - Dementia [Recovered/Resolved]
  - Muscle spasms [Not Recovered/Not Resolved]
  - Death [Fatal]
  - Actinic keratosis [Not Recovered/Not Resolved]

NARRATIVE: CASE EVENT DATE: 2015
